FAERS Safety Report 10414337 (Version 1)
Quarter: 2014Q3

REPORT INFORMATION
  Report Type: Spontaneous
  Country: CN (occurrence: CN)
  Receive Date: 20140828
  Receipt Date: 20140828
  Transmission Date: 20150326
  Serious: Yes (Death, Hospitalization)
  Sender: FDA-Public Use
  Company Number: CN-ACCORD-025532

PATIENT
  Age: 62 Year
  Sex: Female

DRUGS (4)
  1. CAPECITABINE [Suspect]
     Active Substance: CAPECITABINE
     Indication: PANCREATIC CARCINOMA METASTATIC
     Dosage: CHEMOTHERAPY ON DAYS TWO TO 15, OF A 21 DAY CYCLE.
     Route: 048
     Dates: start: 201305
  2. LEUCOGEN [Concomitant]
     Active Substance: LEUCOGEN
  3. GEMCITABINE/GEMCITABINE HYDROCHLORIDE [Suspect]
     Active Substance: GEMCITABINE\GEMCITABINE HYDROCHLORIDE
     Indication: PANCREATIC CARCINOMA METASTATIC
     Dosage: CHEMOTHERAPY ON DAYS ONE AND EIGHT.
     Route: 042
     Dates: start: 201305
  4. GLUTATHIONE/GLUTATHIONE SODIUM [Concomitant]
     Active Substance: GLUTATHIONE

REACTIONS (7)
  - Hepatic function abnormal [Not Recovered/Not Resolved]
  - Pancreatitis acute [Fatal]
  - Hypovolaemic shock [None]
  - Renal failure acute [Unknown]
  - Bacillus test positive [None]
  - Bone marrow failure [Unknown]
  - Infection [Unknown]
